FAERS Safety Report 14013012 (Version 2)
Quarter: 2017Q3

REPORT INFORMATION
  Report Type: Spontaneous
  Country: CN (occurrence: CN)
  Receive Date: 20170926
  Receipt Date: 20170928
  Transmission Date: 20171128
  Serious: Yes (Hospitalization)
  Sender: FDA-Public Use
  Company Number: CN-SHENZHEN TECHDOW PHARMACEUTICAL CO. LTD-CN-2017TEC0000054

PATIENT

DRUGS (1)
  1. HEPARIN SODIUM INJECTION USP, PRESERVATIVE FREE [Suspect]
     Active Substance: HEPARIN SODIUM
     Indication: ANTICOAGULANT THERAPY
     Dosage: UNK, RECEIVED FOR 24 HRS POST SURGERY

REACTIONS (2)
  - Cerebral ischaemia [Unknown]
  - Venous occlusion [Unknown]
